FAERS Safety Report 8443967-7 (Version None)
Quarter: 2012Q2

REPORT INFORMATION
  Report Type: 
  Country: None (occurrence: None)
  Receive Date: 20120323
  Receipt Date: 20110616
  Transmission Date: 20120825
  Serious: Yes (Other)
  Sender: FDA-Public Use
  Company Number: 163-21880-11062284

PATIENT
  Sex: Male

DRUGS (4)
  1. REVLIMID [Suspect]
     Indication: MULTIPLE MYELOMA
     Dosage: 10 MG, DAILY X 21 DAYS, PO 15 MG, DAILY X 21 DAYS, PO 15 MG, DAILY X 21 DAYS, PO
     Route: 048
     Dates: start: 20100101, end: 20100101
  2. REVLIMID [Suspect]
     Indication: MULTIPLE MYELOMA
     Dosage: 10 MG, DAILY X 21 DAYS, PO 15 MG, DAILY X 21 DAYS, PO 15 MG, DAILY X 21 DAYS, PO
     Route: 048
     Dates: start: 20091017
  3. REVLIMID [Suspect]
     Indication: MULTIPLE MYELOMA
     Dosage: 10 MG, DAILY X 21 DAYS, PO 15 MG, DAILY X 21 DAYS, PO 15 MG, DAILY X 21 DAYS, PO
     Route: 048
     Dates: start: 20110501
  4. G-CSF (GRANULOCYTE COLONY STIMULATING FACTOR) (UNKNOWN) [Concomitant]

REACTIONS (2)
  - MULTIPLE MYELOMA [None]
  - BONE MARROW FAILURE [None]
